FAERS Safety Report 14292045 (Version 3)
Quarter: 2018Q2

REPORT INFORMATION
  Report Type: Spontaneous
  Country: US (occurrence: US)
  Receive Date: 20171215
  Receipt Date: 20180608
  Transmission Date: 20180711
  Serious: Yes (Hospitalization, Other)
  Sender: FDA-Public Use
  Company Number: US-ASTRAZENECA-2017SF27072

PATIENT
  Age: 23 Year
  Sex: Female
  Weight: 90.3 kg

DRUGS (45)
  1. TRIAMTERENE+HCTZ [Concomitant]
  2. AMOXICILLIN. [Concomitant]
     Active Substance: AMOXICILLIN
  3. OXYCODONE AND ACETAMINOPHEN [Concomitant]
     Active Substance: ACETAMINOPHEN\OXYCODONE HYDROCHLORIDE
  4. DEXILANT [Suspect]
     Active Substance: DEXLANSOPRAZOLE
     Route: 065
  5. MAGNESIUM [Concomitant]
     Active Substance: MAGNESIUM
     Indication: ELECTROLYTE IMBALANCE
  6. RANITIDINE. [Concomitant]
     Active Substance: RANITIDINE
  7. METHYLPREDNISOLONE. [Concomitant]
     Active Substance: METHYLPREDNISOLONE
  8. CYANOCOBALAMIN. [Concomitant]
     Active Substance: CYANOCOBALAMIN
  9. HYDROCHLOROTHIAZIDE. [Concomitant]
     Active Substance: HYDROCHLOROTHIAZIDE
  10. LEVOTHYROXINE. [Concomitant]
     Active Substance: LEVOTHYROXINE
  11. PROAIR HFA [Concomitant]
     Active Substance: ALBUTEROL SULFATE
  12. CEFDINIR. [Concomitant]
     Active Substance: CEFDINIR
  13. PRILOSEC OTC [Suspect]
     Active Substance: OMEPRAZOLE MAGNESIUM
     Indication: GASTROOESOPHAGEAL REFLUX DISEASE
     Route: 048
     Dates: start: 2006, end: 2012
  14. PREVACID [Suspect]
     Active Substance: LANSOPRAZOLE
     Route: 065
  15. PROTONIX [Suspect]
     Active Substance: PANTOPRAZOLE SODIUM
     Route: 065
  16. CALCIUM [Concomitant]
     Active Substance: CALCIUM
     Indication: ELECTROLYTE IMBALANCE
  17. LAMISIL [Concomitant]
     Active Substance: TERBINAFINE HYDROCHLORIDE
  18. SKELAXIN [Concomitant]
     Active Substance: METAXALONE
  19. VITAMIN D [Concomitant]
     Active Substance: CHOLECALCIFEROL
  20. NAPROXEN. [Concomitant]
     Active Substance: NAPROXEN
  21. CEPHALEXIN. [Concomitant]
     Active Substance: CEPHALEXIN
  22. DIAZEPAM. [Concomitant]
     Active Substance: DIAZEPAM
  23. NEXIUM [Suspect]
     Active Substance: ESOMEPRAZOLE MAGNESIUM
     Indication: GASTROOESOPHAGEAL REFLUX DISEASE
     Route: 048
     Dates: start: 2003, end: 2016
  24. NEXIUM [Suspect]
     Active Substance: ESOMEPRAZOLE MAGNESIUM
     Indication: GASTROOESOPHAGEAL REFLUX DISEASE
     Route: 048
     Dates: start: 2005
  25. FAMOTIDINE. [Concomitant]
     Active Substance: FAMOTIDINE
  26. ATENOLOL. [Concomitant]
     Active Substance: ATENOLOL
  27. NEURONTIN [Concomitant]
     Active Substance: GABAPENTIN
  28. BENZONATATE. [Concomitant]
     Active Substance: BENZONATATE
  29. CYCLOBENZAPRINE. [Concomitant]
     Active Substance: CYCLOBENZAPRINE
  30. POTASSIUM [Concomitant]
     Active Substance: POTASSIUM
     Indication: ELECTROLYTE IMBALANCE
  31. ENALAPRIL+HCTZ [Concomitant]
     Active Substance: ENALAPRIL\HYDROCHLOROTHIAZIDE
  32. LYRICA [Concomitant]
     Active Substance: PREGABALIN
  33. PRILOSEC [Suspect]
     Active Substance: OMEPRAZOLE MAGNESIUM
     Indication: GASTROOESOPHAGEAL REFLUX DISEASE
     Dosage: GENERIC
     Route: 065
     Dates: start: 2005, end: 2016
  34. VIT.D [Concomitant]
     Indication: HYPOVITAMINOSIS
  35. PEPCID [Concomitant]
     Active Substance: FAMOTIDINE
  36. ALPRAZOLAM. [Concomitant]
     Active Substance: ALPRAZOLAM
  37. PREMARIN [Concomitant]
     Active Substance: ESTROGENS, CONJUGATED
  38. CIPROFLOXACIN HYDROCHLORIDE. [Concomitant]
     Active Substance: CIPROFLOXACIN HYDROCHLORIDE
  39. ALTACE [Concomitant]
     Active Substance: RAMIPRIL
  40. MAGNESIUM OXIDE. [Concomitant]
     Active Substance: MAGNESIUM OXIDE
  41. PRILOSEC [Suspect]
     Active Substance: OMEPRAZOLE MAGNESIUM
     Indication: GASTROOESOPHAGEAL REFLUX DISEASE
     Route: 048
     Dates: start: 2003, end: 2016
  42. ZEGERID [Suspect]
     Active Substance: OMEPRAZOLE\SODIUM BICARBONATE
     Route: 065
  43. CARISOPRODOL. [Concomitant]
     Active Substance: CARISOPRODOL
  44. AMITRIPTYLINE HYDROCHLORIDE. [Concomitant]
     Active Substance: AMITRIPTYLINE HYDROCHLORIDE
  45. MELOXICAM. [Concomitant]
     Active Substance: MELOXICAM

REACTIONS (5)
  - Chronic kidney disease [Unknown]
  - Hypocalcaemia [Unknown]
  - Hypertension [Unknown]
  - Hypokalaemia [Unknown]
  - Acute kidney injury [Recovered/Resolved]

NARRATIVE: CASE EVENT DATE: 1990
